FAERS Safety Report 6045764-9 (Version None)
Quarter: 2009Q1

REPORT INFORMATION
  Report Type: 
  Country: None (occurrence: None)
  Receive Date: 20090121
  Receipt Date: 20090113
  Transmission Date: 20090719
  Serious: Yes (Other)
  Sender: FDA-Public Use
  Company Number: US-ABBOTT-09P-163-0497873-00

PATIENT
  Sex: Female
  Weight: 163.44 kg

DRUGS (6)
  1. KALETRA [Suspect]
     Indication: HIV TEST POSITIVE
     Dates: start: 20080801, end: 20081001
  2. KALETRA [Suspect]
     Dates: start: 20090109
  3. KALETRA [Suspect]
     Dosage: UNSURE OF STRENGTH
     Route: 048
     Dates: start: 20070101, end: 20070101
  4. COMBIVIR [Concomitant]
     Indication: HIV INFECTION
     Dosage: TWO A DAY- UNSURE OF STRENGTH
     Route: 048
  5. NIFEDIPINE [Concomitant]
     Indication: HYPERTENSION
     Route: 048
  6. VITAMIN TAB [Concomitant]
     Indication: VITAMIN SUPPLEMENTATION
     Route: 048

REACTIONS (4)
  - ABDOMINAL PAIN [None]
  - ABORTION SPONTANEOUS [None]
  - NAUSEA [None]
  - VOMITING [None]
